FAERS Safety Report 8894740 (Version 1)
Quarter: 2012Q4

REPORT INFORMATION
  Report Type: 
  Country: US (occurrence: US)
  Receive Date: 20121108
  Receipt Date: 20121108
  Transmission Date: 20130627
  Serious: No
  Sender: FDA-Public Use
  Company Number: US-ASTRAZENECA-2012SE81592

PATIENT
  Age: 70 Year
  Sex: Female

DRUGS (2)
  1. RHINOCORT AQUA [Suspect]
     Route: 045
  2. SYMBICORT PMDI [Suspect]
     Route: 055

REACTIONS (2)
  - Asthma [Unknown]
  - Dysphonia [Unknown]
